FAERS Safety Report 14854381 (Version 1)
Quarter: 2018Q2

REPORT INFORMATION
  Report Type: Spontaneous
  Country: US (occurrence: US)
  Receive Date: 20180507
  Receipt Date: 20180507
  Transmission Date: 20180711
  Serious: No
  Sender: FDA-Public Use
  Company Number: US-BAYER-2018-082458

PATIENT
  Sex: Male

DRUGS (4)
  1. ENEMA CASEN [Concomitant]
  2. MIRALAX [Suspect]
     Active Substance: POLYETHYLENE GLYCOL 3350
     Indication: GASTROINTESTINAL DISORDER
     Dosage: UNK
  3. OXYCONTIN [Concomitant]
     Active Substance: OXYCODONE HYDROCHLORIDE
  4. OXYCODONE [Concomitant]
     Active Substance: OXYCODONE

REACTIONS (7)
  - Incorrect dosage administered [Unknown]
  - Diarrhoea [Unknown]
  - Abnormal faeces [Unknown]
  - Dyschezia [None]
  - Drug ineffective [Unknown]
  - Constipation [None]
  - Dehydration [Unknown]
